FAERS Safety Report 26135422 (Version 1)
Quarter: 2025Q4

REPORT INFORMATION
  Report Type: Spontaneous
  Country: KR (occurrence: KR)
  Receive Date: 20251209
  Receipt Date: 20251209
  Transmission Date: 20260117
  Serious: Yes (Life-Threatening)
  Sender: MERCK SHARP & DOHME LLC
  Company Number: KR-01054554290-2009SP025942

PATIENT
  Age: 67 Year
  Sex: Male
  Weight: 61 kg

DRUGS (6)
  1. ZEMURON [Suspect]
     Active Substance: ROCURONIUM BROMIDE
     Indication: Induction of anaesthesia
     Dosage: DOSE DESCRIPTION : 50 MG, UNKNOWN?UNKNOWN
     Route: 040
  2. ZEMURON [Suspect]
     Active Substance: ROCURONIUM BROMIDE
     Indication: Induction of anaesthesia
     Dosage: DOSE DESCRIPTION : 0.8 MG/KG, UNK
     Route: 040
  3. MIDAZENON [Concomitant]
     Indication: Premedication
     Dosage: DOSE DESCRIPTION : 7.5 MG, UNKNOWN?UNKNOWN
     Route: 048
  4. REMIFENTANIL HYDROCHLORIDE [Concomitant]
     Active Substance: REMIFENTANIL HYDROCHLORIDE
     Indication: Anaesthesia procedure
     Dosage: DOSE DESCRIPTION : UNK UNK, UNKNOWN?UNKNOWN
     Route: 042
  5. PROPOFOL [Concomitant]
     Active Substance: PROPOFOL
     Indication: Anaesthesia procedure
     Dosage: DOSE DESCRIPTION : ADMINISTERED AGAIN 0.8 MG/KG ON AN UNKNOWN DATE?UNKNOWN
     Route: 042
  6. SEVOFLURANE [Concomitant]
     Active Substance: SEVOFLURANE
     Dosage: DOSE DESCRIPTION : MASK VENTILATION OF 3 VOL% IN OXYGEN. ADMINISTERED AGAIN ON AN UNKNOWN DATE?UN...
     Route: 065

REACTIONS (1)
  - Hypertensive crisis [Recovered/Resolved]
